FAERS Safety Report 4284897-4 (Version None)
Quarter: 2004Q1

REPORT INFORMATION
  Report Type: 
  Country: None (occurrence: None)
  Receive Date: 20040121
  Receipt Date: 20021119
  Transmission Date: 20041129
  Serious: Yes (Hospitalization)
  Sender: FDA-Public Use
  Company Number: A03200201378

PATIENT
  Age: 76 Year
  Sex: Male
  Weight: 72.5755 kg

DRUGS (6)
  1. PLAVIX [Suspect]
     Indication: DIPLOPIA
     Dosage: 75 MG QD - ORAL
     Dates: start: 20021001, end: 20021007
  2. QUINAPRIL HYDROCHLORIDE [Concomitant]
  3. ETODOLAC [Concomitant]
  4. SAW PALMETTO [Concomitant]
  5. INSUL.IN GLARGINE [Concomitant]
  6. INSULIN LISPRO [Concomitant]

REACTIONS (4)
  - ABDOMINAL PAIN UPPER [None]
  - ANAEMIA [None]
  - DIARRHOEA HAEMORRHAGIC [None]
  - HAEMATEMESIS [None]
